FAERS Safety Report 5222843-7 (Version None)
Quarter: 2007Q1

REPORT INFORMATION
  Report Type: 
  Country: None (occurrence: None)
  Receive Date: 20070129
  Receipt Date: 20070117
  Transmission Date: 20070707
  Serious: Yes (Hospitalization)
  Sender: FDA-Public Use
  Company Number: FRASAN06256

PATIENT
  Age: 45 Year
  Sex: Female

DRUGS (1)
  1. AMOXICILLIN + CLAVULANIC ACID [Suspect]
     Dosage: 500MG PER DAY
     Route: 048
     Dates: start: 20061028, end: 20061028

REACTIONS (2)
  - ANGIOEDEMA [None]
  - MALAISE [None]
